FAERS Safety Report 17150260 (Version 1)
Quarter: 2019Q4

REPORT INFORMATION
  Report Type: Spontaneous
  Country: US (occurrence: US)
  Receive Date: 20191213
  Receipt Date: 20191213
  Transmission Date: 20200122
  Serious: No
  Sender: FDA-Public Use
  Company Number: US-BRISTOL-MYERS SQUIBB COMPANY-BMS-2019-119902

PATIENT
  Sex: Male

DRUGS (1)
  1. ORENCIA [Suspect]
     Active Substance: ABATACEPT
     Indication: AUTOIMMUNE LYMPHOPROLIFERATIVE SYNDROME
     Dosage: 125MG/ML, QWK
     Route: 058
     Dates: start: 20190917

REACTIONS (2)
  - Drug ineffective for unapproved indication [Unknown]
  - Intentional product use issue [Unknown]
